FAERS Safety Report 13937570 (Version 2)
Quarter: 2017Q3

REPORT INFORMATION
  Report Type: Report from Study
  Country: BR (occurrence: BR)
  Receive Date: 20170905
  Receipt Date: 20170906
  Transmission Date: 20171127
  Serious: Yes (Hospitalization, Other)
  Sender: FDA-Public Use
  Company Number: BR-JNJFOC-20170829269

PATIENT
  Sex: Female

DRUGS (3)
  1. LEFLUNOMIDE. [Concomitant]
     Active Substance: LEFLUNOMIDE
     Route: 065
  2. REMICADE [Suspect]
     Active Substance: INFLIXIMAB
     Indication: RHEUMATOID ARTHRITIS
     Route: 042
     Dates: start: 2015, end: 20170531
  3. METHOTREXATE. [Concomitant]
     Active Substance: METHOTREXATE
     Route: 065

REACTIONS (7)
  - Alopecia [Not Recovered/Not Resolved]
  - Joint swelling [Recovering/Resolving]
  - Product use issue [Unknown]
  - Pain [Unknown]
  - Neurocysticercosis [Recovered/Resolved with Sequelae]
  - Disability [Unknown]
  - Off label use [Unknown]

NARRATIVE: CASE EVENT DATE: 2015
